FAERS Safety Report 23720729 (Version 5)
Quarter: 2024Q4

REPORT INFORMATION
  Report Type: Report from Study
  Country: JP (occurrence: JP)
  Receive Date: 20240409
  Receipt Date: 20241114
  Transmission Date: 20250115
  Serious: Yes (Other)
  Sender: ROCHE
  Company Number: JP-CHUGAI-2024010830

PATIENT
  Age: 28 Year
  Sex: Female
  Weight: 67 kg

DRUGS (14)
  1. ENSPRYNG [Suspect]
     Active Substance: SATRALIZUMAB-MWGE
     Indication: Neuromyelitis optica spectrum disorder
     Dosage: 120 MILLIGRAM, ONCE/2WEEKS
     Route: 058
     Dates: start: 20210713, end: 20210810
  2. ENSPRYNG [Suspect]
     Active Substance: SATRALIZUMAB-MWGE
     Dosage: 120 MILLIGRAM, ONCE/4WEEKS
     Route: 058
     Dates: start: 20210907, end: 20220113
  3. ENSPRYNG [Suspect]
     Active Substance: SATRALIZUMAB-MWGE
     Dosage: 120 MILLIGRAM, ONCE/5WEEKS
     Route: 058
     Dates: start: 20230208, end: 20230914
  4. TACROLIMUS [Concomitant]
     Active Substance: TACROLIMUS
     Indication: Neuromyelitis optica spectrum disorder
     Dosage: 2.5 MG/DAY
     Route: 065
     Dates: start: 20210713, end: 20220113
  5. TACROLIMUS [Concomitant]
     Active Substance: TACROLIMUS
     Dosage: 1.5 MG/DAY
     Route: 065
     Dates: start: 20220315, end: 20220523
  6. TACROLIMUS [Concomitant]
     Active Substance: TACROLIMUS
     Dosage: 1.0 MG/DAY
     Route: 065
     Dates: start: 20220524, end: 20230424
  7. TACROLIMUS [Concomitant]
     Active Substance: TACROLIMUS
     Dosage: 0.5 MG/DAY
     Route: 065
     Dates: start: 20230425, end: 20231019
  8. TACROLIMUS [Concomitant]
     Active Substance: TACROLIMUS
     Dosage: UNK
     Route: 065
     Dates: start: 20220114
  9. TACROLIMUS [Concomitant]
     Active Substance: TACROLIMUS
     Dosage: 2.0 MG/DAY
     Route: 065
     Dates: end: 20220314
  10. COVID-19 VACCINE MRNA [Concomitant]
     Indication: COVID-19 prophylaxis
     Dosage: UNK UNK, SINGLE
     Route: 065
     Dates: start: 202107, end: 202107
  11. COVID-19 VACCINE MRNA [Concomitant]
     Dosage: UNK UNK, SINGLE
     Route: 065
     Dates: start: 202107, end: 202107
  12. COVID-19 VACCINE MRNA [Concomitant]
     Dosage: UNK UNK, SINGLE
     Route: 065
     Dates: start: 202202, end: 202202
  13. COVID-19 VACCINE MRNA [Concomitant]
     Dosage: UNK UNK, SINGLE
     Route: 065
     Dates: start: 202208, end: 202208
  14. COVID-19 VACCINE MRNA [Concomitant]
     Dosage: UNK UNK, SINGLE
     Route: 065
     Dates: start: 202211, end: 202211

REACTIONS (3)
  - Subcutaneous abscess [Recovered/Resolved]
  - Perineal abscess [Recovered/Resolved]
  - Cystitis [Unknown]

NARRATIVE: CASE EVENT DATE: 20230701
